FAERS Safety Report 22219549 (Version 1)
Quarter: 2023Q2

REPORT INFORMATION
  Report Type: Spontaneous
  Country: RU (occurrence: RU)
  Receive Date: 20230417
  Receipt Date: 20230417
  Transmission Date: 20230722
  Serious: Yes (Other)
  Sender: FDA-Public Use
  Company Number: ALC2022RU006196

PATIENT
  Sex: Male

DRUGS (1)
  1. DEXTRAN 70\SODIUM CHLORIDE [Suspect]
     Active Substance: DEXTRAN 70\SODIUM CHLORIDE
     Indication: Product used for unknown indication
     Dosage: UNK
     Route: 047

REACTIONS (2)
  - Corneal erosion [Recovered/Resolved]
  - Product use in unapproved indication [Unknown]
